FAERS Safety Report 21573026 (Version 1)
Quarter: 2022Q4

REPORT INFORMATION
  Report Type: Spontaneous
  Country: JP (occurrence: JP)
  Receive Date: 20221109
  Receipt Date: 20221109
  Transmission Date: 20230113
  Serious: Yes (Other)
  Sender: FDA-Public Use
  Company Number: JP-PFIZER INC-202201283448

PATIENT
  Age: 71 Year
  Sex: Male

DRUGS (6)
  1. FLUCONAZOLE [Suspect]
     Active Substance: FLUCONAZOLE
     Indication: Pneumonia cryptococcal
     Dosage: 200 MG
     Dates: start: 20220729
  2. BRAFTOVI [Concomitant]
     Active Substance: ENCORAFENIB
     Dosage: 300 MG, DAILY
     Dates: start: 20220527, end: 20220909
  3. BRAFTOVI [Concomitant]
     Active Substance: ENCORAFENIB
     Dosage: 225 MG
     Dates: start: 20220917
  4. BRAFTOVI [Concomitant]
     Active Substance: ENCORAFENIB
     Dosage: 150 MG
     Dates: start: 20221007
  5. MEKTOVI [Concomitant]
     Active Substance: BINIMETINIB
     Dosage: 60 MG, DAILY
     Dates: start: 20220527, end: 20220909
  6. MEKTOVI [Concomitant]
     Active Substance: BINIMETINIB
     Dosage: 60 MG, DAILY
     Dates: start: 20220917

REACTIONS (6)
  - Ascites [Unknown]
  - Constipation [Unknown]
  - Fluid intake reduced [Recovering/Resolving]
  - Dehydration [Recovering/Resolving]
  - General physical health deterioration [Unknown]
  - Blood creatinine increased [Unknown]

NARRATIVE: CASE EVENT DATE: 20220826
